FAERS Safety Report 8908267 (Version 2)
Quarter: 2012Q4

REPORT INFORMATION
  Report Type: 
  Country: JP (occurrence: JP)
  Receive Date: 20121114
  Receipt Date: 20121120
  Transmission Date: 20130627
  Serious: Yes (Hospitalization)
  Sender: FDA-Public Use
  Company Number: PHHY2012JP104324

PATIENT
  Age: 92 Year
  Sex: Female

DRUGS (3)
  1. EXELON PATCH [Suspect]
     Indication: DEMENTIA ALZHEIMER^S TYPE
     Dosage: 13.5 mg daily
     Route: 062
     Dates: start: 201204
  2. EXELON PATCH [Suspect]
     Dosage: 18 mg daily
     Route: 062
     Dates: start: 201207, end: 20121030
  3. EXELON PATCH [Suspect]
     Dosage: 4.5 mg, UNK
     Route: 062
     Dates: start: 20121109

REACTIONS (2)
  - Nasopharyngitis [Recovering/Resolving]
  - Pyrexia [Recovering/Resolving]
